FAERS Safety Report 7468701-9 (Version None)
Quarter: 2011Q2

REPORT INFORMATION
  Report Type: 
  Country: None (occurrence: None)
  Receive Date: 20110510
  Receipt Date: 20110304
  Transmission Date: 20111010
  Serious: Yes (Hospitalization, Other)
  Sender: FDA-Public Use
  Company Number: US-BIOGENIDEC-2011BI002650

PATIENT
  Age: 48 Year
  Sex: Male
  Weight: 114 kg

DRUGS (6)
  1. LOVAZA [Concomitant]
  2. ADDERALL 10 [Concomitant]
     Route: 048
  3. PREDNISONE TAB [Concomitant]
  4. CIALIS [Concomitant]
  5. ST. JOHN'S WORT [Concomitant]
  6. TYSABRI [Suspect]
     Indication: MULTIPLE SCLEROSIS
     Route: 042
     Dates: start: 20061208, end: 20101228

REACTIONS (1)
  - PROGRESSIVE MULTIFOCAL LEUKOENCEPHALOPATHY [None]
